FAERS Safety Report 9052650 (Version 2)
Quarter: 2013Q1

REPORT INFORMATION
  Report Type: Spontaneous
  Country: BR (occurrence: BR)
  Receive Date: 20130207
  Receipt Date: 20130219
  Transmission Date: 20140127
  Serious: Yes (Hospitalization, Other)
  Sender: FDA-Public Use
  Company Number: BR-PFIZER INC-2013050598

PATIENT
  Age: 60 Year
  Sex: Female
  Weight: 68 kg

DRUGS (6)
  1. LYRICA [Suspect]
     Indication: RHEUMATOID ARTHRITIS
     Dosage: UNSPECIFIED DOSE, 1X/DAY
     Route: 048
  2. FRONTAL [Concomitant]
     Indication: ANXIETY
     Dosage: 1 TABLET DAILY
     Dates: start: 2008
  3. LOSARTAN [Concomitant]
     Indication: HYPERTENSION
     Dosage: 1 TABLET EVERY 12 HOURS
     Dates: start: 201209
  4. LEVAMLODIPINE BESYLATE [Concomitant]
     Indication: HYPERTENSION
     Dosage: 1 TABLET EVERY 12 HOURS
     Dates: start: 201209
  5. PRISTIQ [Concomitant]
     Indication: DEPRESSION
     Dosage: 1 TABLET DAILY
     Dates: start: 2006
  6. SYNTHROID [Concomitant]
     Indication: HYPOTHYROIDISM
     Dosage: 1 TABLET DAILY
     Dates: start: 1998

REACTIONS (2)
  - Rheumatoid arthritis [Unknown]
  - Off label use [Unknown]
